FAERS Safety Report 15584444 (Version 2)
Quarter: 2018Q4

REPORT INFORMATION
  Report Type: Report from Study
  Country: CN (occurrence: CN)
  Receive Date: 20181104
  Receipt Date: 20181112
  Transmission Date: 20190205
  Serious: Yes (Death, Hospitalization)
  Sender: FDA-Public Use
  Company Number: PHHY2018CN145004

PATIENT
  Age: 70 Year
  Sex: Male

DRUGS (1)
  1. GLIVEC [Suspect]
     Active Substance: IMATINIB MESYLATE
     Indication: GASTROINTESTINAL STROMAL TUMOUR
     Dosage: 400 MG, QD
     Route: 048
     Dates: start: 20150407

REACTIONS (5)
  - Abdominal lymphadenopathy [Unknown]
  - Abdominal distension [Unknown]
  - Death [Fatal]
  - Coma [Unknown]
  - Purpura [Unknown]

NARRATIVE: CASE EVENT DATE: 201712
